FAERS Safety Report 9559896 (Version 1)
Quarter: 2013Q3

REPORT INFORMATION
  Report Type: Spontaneous
  Country: CN (occurrence: None)
  Receive Date: 20130924
  Receipt Date: 20130924
  Transmission Date: 20140515
  Serious: Yes (Other)
  Sender: FDA-Public Use
  Company Number: TW-013026

PATIENT
  Sex: 0

DRUGS (2)
  1. MINIRIN [Suspect]
     Indication: LOWER URINARY TRACT SYMPTOMS
     Route: 048
  2. MINIRIN [Suspect]
     Indication: NOCTURIA
     Route: 048

REACTIONS (3)
  - Hyponatraemia [None]
  - Hypokalaemia [None]
  - Asthenia [None]
